FAERS Safety Report 5129629-2 (Version None)
Quarter: 2006Q4

REPORT INFORMATION
  Report Type: 
  Country: None (occurrence: None)
  Receive Date: 20061012
  Receipt Date: 20060929
  Transmission Date: 20070319
  Serious: Yes (Other)
  Sender: FDA-Public Use
  Company Number: 2006121086

PATIENT
  Sex: Male
  Weight: 53.978 kg

DRUGS (8)
  1. NEURONTIN [Suspect]
     Indication: SCIATICA
     Dosage: 300 MG (300 MG, 1 IN 1 D)
  2. LYRICA [Suspect]
     Indication: SCIATICA
     Dosage: (FREQUENCY: DAILY INTERVAL: EVERY DAY)
     Dates: start: 20060101, end: 20060905
  3. ALLEGRA [Concomitant]
  4. ZOCOR [Concomitant]
  5. IMITREX (SUMARTRIPAN SUCCINATE) [Concomitant]
  6. RELPAX [Concomitant]
  7. PROGESTERONE [Concomitant]
  8. ALL OTHER THERAPEUTIC PRODUCTS [Concomitant]

REACTIONS (7)
  - BACK PAIN [None]
  - CONDITION AGGRAVATED [None]
  - DRUG EFFECT DECREASED [None]
  - PAIN [None]
  - SOMNOLENCE [None]
  - SURGERY [None]
  - VISION BLURRED [None]
